FAERS Safety Report 6430751-9 (Version None)
Quarter: 2009Q4

REPORT INFORMATION
  Report Type: 
  Country: None (occurrence: None)
  Receive Date: 20091106
  Receipt Date: 20091023
  Transmission Date: 20100525
  Serious: Yes (Other)
  Sender: FDA-Public Use
  Company Number: JP-PFIZER INC-2009293520

PATIENT
  Age: 7 Year
  Sex: Female

DRUGS (5)
  1. GABAPENTIN [Suspect]
     Indication: CONVULSION
     Route: 048
  2. TOPIRAMATE [Suspect]
     Indication: CONVULSION
  3. VALPROATE SODIUM [Concomitant]
     Indication: CONVULSION
  4. NITRAZEPAM [Concomitant]
     Indication: CONVULSION
  5. PHENOBARBITAL [Concomitant]
     Indication: CONVULSION

REACTIONS (1)
  - CONVULSION [None]
